FAERS Safety Report 7162339-9 (Version None)
Quarter: 2010Q4

REPORT INFORMATION
  Report Type: 
  Country: None (occurrence: None)
  Receive Date: 20101215
  Receipt Date: 20091016
  Transmission Date: 20110411
  Serious: Yes (Life-Threatening, Hospitalization)
  Sender: FDA-Public Use
  Company Number: FR-PFIZER INC-2009284080

PATIENT
  Age: 71 Year

DRUGS (6)
  1. LYRICA [Suspect]
     Dosage: 50 MG, 3X/DAY
     Route: 048
     Dates: start: 20090101, end: 20090503
  2. PAROXETINE HCL [Suspect]
     Dosage: 20 MG, 2X/DAY
     Route: 048
     Dates: start: 20090101, end: 20090503
  3. EQUANIL [Suspect]
     Dosage: 400 MG, 3X/DAY
     Route: 048
     Dates: start: 20090101, end: 20090503
  4. TRANXENE [Suspect]
     Dosage: 20 MG, 4X/DAY
     Route: 048
     Dates: start: 20090101, end: 20090503
  5. NOCTAMID [Suspect]
     Dosage: 2 MG, UNK
     Route: 048
     Dates: start: 20090101, end: 20090503
  6. MIANSERIN HYDROCHLORIDE [Suspect]
     Dosage: UNK
     Route: 048
     Dates: start: 20090101, end: 20090503

REACTIONS (3)
  - CARDIO-RESPIRATORY ARREST [None]
  - FOREIGN BODY [None]
  - POST-ANOXIC MYOCLONUS [None]
